FAERS Safety Report 11166080 (Version 1)
Quarter: 2015Q2

REPORT INFORMATION
  Report Type: Spontaneous
  Country: US (occurrence: US)
  Receive Date: 20150604
  Receipt Date: 20150604
  Transmission Date: 20150821
  Serious: No
  Sender: FDA-Public Use
  Company Number: US-009507513-1506USA002156

PATIENT
  Age: 25 Year
  Sex: Female
  Weight: 110.2 kg

DRUGS (1)
  1. NEXPLANON [Suspect]
     Active Substance: ETONOGESTREL
     Indication: CONTRACEPTION
     Dosage: EVERY 3 YEARS IN THE RIGHT ARM
     Route: 059
     Dates: start: 20140319

REACTIONS (3)
  - Device kink [Not Recovered/Not Resolved]
  - Medical device complication [Not Recovered/Not Resolved]
  - No adverse event [Unknown]

NARRATIVE: CASE EVENT DATE: 20150529
